FAERS Safety Report 5728761-X (Version None)
Quarter: 2008Q2

REPORT INFORMATION
  Report Type: 
  Country: None (occurrence: None)
  Receive Date: 20080506
  Receipt Date: 20080504
  Transmission Date: 20081010
  Serious: No
  Sender: FDA-Public Use
  Company Number: B0518259A

PATIENT
  Age: 21 Year
  Sex: Male

DRUGS (1)
  1. HEPTODIN [Suspect]
     Indication: HEPATITIS B
     Dosage: 100MG PER DAY
     Route: 048
     Dates: start: 20060301, end: 20071101

REACTIONS (1)
  - ALBUMINURIA [None]
